FAERS Safety Report 5898662-5 (Version None)
Quarter: 2008Q3

REPORT INFORMATION
  Report Type: 
  Country: None (occurrence: None)
  Receive Date: 20080925
  Receipt Date: 20080321
  Transmission Date: 20090109
  Serious: No
  Sender: FDA-Public Use
  Company Number: A0716790A

PATIENT
  Age: 44 Year
  Sex: Female

DRUGS (6)
  1. WELLBUTRIN XL [Suspect]
     Indication: DEPRESSION
     Dosage: 150MG PER DAY
     Route: 048
     Dates: start: 20080306
  2. EFFEXOR [Suspect]
     Indication: DEPRESSION
     Route: 065
  3. LEVOXYL [Concomitant]
  4. NIACIN [Concomitant]
  5. FISH OIL [Concomitant]
  6. VITAMIN TAB [Concomitant]

REACTIONS (3)
  - CRYING [None]
  - DIZZINESS [None]
  - TENSION [None]
